FAERS Safety Report 21971316 (Version 2)
Quarter: 2023Q1

REPORT INFORMATION
  Report Type: Spontaneous
  Country: FR (occurrence: FR)
  Receive Date: 20230209
  Receipt Date: 20230211
  Transmission Date: 20230417
  Serious: Yes (Disabling)
  Sender: FDA-Public Use
  Company Number: FR-002147023-NVSC2023FR027889

PATIENT
  Age: 38 Year
  Sex: Female

DRUGS (6)
  1. TASIGNA [Suspect]
     Active Substance: NILOTINIB
     Indication: Chronic myeloid leukaemia
     Dosage: 300 MG, BID (AROUND FEB 2021)
     Route: 065
     Dates: start: 202102
  2. TASIGNA [Suspect]
     Active Substance: NILOTINIB
     Dosage: 150 MG, BID (AROUND FEB 2022)
     Route: 065
     Dates: start: 202202
  3. TASIGNA [Suspect]
     Active Substance: NILOTINIB
     Dosage: 50 MG, BID
     Route: 065
  4. VOGALENE [Concomitant]
     Active Substance: METOPIMAZINE
     Indication: Product used for unknown indication
     Dosage: UNK
     Route: 065
  5. PHLOROGLUCINOL [Concomitant]
     Active Substance: PHLOROGLUCINOL
     Indication: Product used for unknown indication
     Dosage: UNK
     Route: 065
  6. SMECTA [Concomitant]
     Active Substance: MONTMORILLONITE
     Indication: Product used for unknown indication
     Dosage: UNK
     Route: 065

REACTIONS (4)
  - Tendon pain [Unknown]
  - Vascular pain [Unknown]
  - Arthralgia [Unknown]
  - Product use issue [Unknown]
